FAERS Safety Report 9982888 (Version 1)
Quarter: 2014Q1

REPORT INFORMATION
  Report Type: Report from Study
  Country: US (occurrence: US)
  Receive Date: 20140307
  Receipt Date: 20140307
  Transmission Date: 20141002
  Serious: No
  Sender: FDA-Public Use
  Company Number: US-ABBVIE-13P-163-1181255-00

PATIENT
  Age: 49 Year
  Sex: Female

DRUGS (11)
  1. HUMIRA [Suspect]
     Indication: COLITIS ULCERATIVE
     Route: 058
     Dates: start: 20131202, end: 20131202
  2. HUMIRA [Suspect]
     Route: 058
     Dates: start: 20131216, end: 20131216
  3. HUMIRA [Suspect]
     Route: 058
  4. ADDERALL [Concomitant]
     Indication: MEMORY IMPAIRMENT
     Route: 048
  5. LORTAB [Concomitant]
     Indication: ABDOMINAL PAIN UPPER
     Dosage: 7.5/500 MG, EVERY SIX HOURS
     Route: 048
  6. ASACOL [Concomitant]
     Indication: PRODUCT USED FOR UNKNOWN INDICATION
     Route: 048
  7. INTEGRA [Concomitant]
     Indication: PRODUCT USED FOR UNKNOWN INDICATION
     Route: 048
  8. BENTYL [Concomitant]
     Indication: ABDOMINAL PAIN UPPER
     Dosage: AS REQUIRED
     Route: 048
  9. IMURAN [Concomitant]
     Indication: PRODUCT USED FOR UNKNOWN INDICATION
     Route: 048
  10. TRILEPTAL [Concomitant]
     Indication: CONVULSION
     Dosage: AT MORNING
  11. TRILEPTAL [Concomitant]
     Dosage: AT NIGHT

REACTIONS (3)
  - Hot flush [Recovered/Resolved]
  - Injection site haemorrhage [Recovering/Resolving]
  - Injection site erythema [Recovering/Resolving]
